FAERS Safety Report 17523473 (Version 1)
Quarter: 2020Q1

REPORT INFORMATION
  Report Type: Spontaneous
  Country: US (occurrence: US)
  Receive Date: 20200310
  Receipt Date: 20200310
  Transmission Date: 20200409
  Serious: No
  Sender: FDA-Public Use
  Company Number: US-SHIRE-US202008688

PATIENT
  Sex: Male
  Weight: 31.29 kg

DRUGS (12)
  1. CUVITRU [Suspect]
     Active Substance: HUMAN IMMUNOGLOBULIN G
     Indication: IMMUNODEFICIENCY COMMON VARIABLE
     Dosage: 10 GRAM, 1X/2WKS
     Route: 058
     Dates: start: 20200304
  2. EPINEPHRINE. [Concomitant]
     Active Substance: EPINEPHRINE
     Indication: PRODUCT USED FOR UNKNOWN INDICATION
  3. ALBUTEROL [SALBUTAMOL] [Concomitant]
     Active Substance: ALBUTEROL
     Indication: PRODUCT USED FOR UNKNOWN INDICATION
  4. DIPHENHYDRAMINE. [Concomitant]
     Active Substance: DIPHENHYDRAMINE
     Indication: PRODUCT USED FOR UNKNOWN INDICATION
  5. SYMBICORT [Concomitant]
     Active Substance: BUDESONIDE\FORMOTEROL FUMARATE DIHYDRATE
     Indication: PRODUCT USED FOR UNKNOWN INDICATION
  6. FLINTSTONES COMPLETE [Concomitant]
     Active Substance: VITAMINS
     Indication: PRODUCT USED FOR UNKNOWN INDICATION
  7. ACETAMINOPHEN. [Concomitant]
     Active Substance: ACETAMINOPHEN
     Indication: PRODUCT USED FOR UNKNOWN INDICATION
  8. CIPRODEX [CIPROFLOXACIN HYDROCHLORIDE] [Concomitant]
     Active Substance: CIPROFLOXACIN HYDROCHLORIDE
     Indication: PRODUCT USED FOR UNKNOWN INDICATION
  9. BROMPHENIRAMINE MALEATE/PSEUDOEPHEDRINE HCL/DEXTROMETHORPHAN HBR [Concomitant]
     Indication: PRODUCT USED FOR UNKNOWN INDICATION
  10. MELATONIN [Concomitant]
     Active Substance: MELATONIN
     Indication: PRODUCT USED FOR UNKNOWN INDICATION
  11. LMX [LIDOCAINE] [Concomitant]
     Indication: PRODUCT USED FOR UNKNOWN INDICATION
  12. BACTRIM [Concomitant]
     Active Substance: SULFAMETHOXAZOLE\TRIMETHOPRIM
     Indication: PRODUCT USED FOR UNKNOWN INDICATION

REACTIONS (2)
  - Screaming [Unknown]
  - Refusal of treatment by patient [Unknown]
